FAERS Safety Report 5563991-1 (Version None)
Quarter: 2007Q4

REPORT INFORMATION
  Report Type: 
  Country: None (occurrence: None)
  Receive Date: 20071217
  Receipt Date: 20071205
  Transmission Date: 20080405
  Serious: Yes (Hospitalization, Other)
  Sender: FDA-Public Use
  Company Number: US-PFIZER INC-2003018003

PATIENT
  Sex: Female
  Weight: 89.8 kg

DRUGS (6)
  1. DILANTIN [Suspect]
     Indication: EPILEPSY
     Route: 048
  2. DILANTIN W/PHENOBARBITAL [Suspect]
     Indication: EPILEPSY
     Dosage: TEXT:UNKNOWN-FREQ:UNKNOWN
     Route: 048
  3. DOCUSATE SODIUM [Suspect]
     Indication: INTESTINAL OBSTRUCTION
     Dates: start: 20071101, end: 20071101
  4. SENNA [Suspect]
     Indication: INTESTINAL OBSTRUCTION
     Dates: start: 20071101, end: 20071101
  5. PHENOBARBITAL TAB [Concomitant]
     Indication: EPILEPSY
     Dosage: TEXT:UNKNOWN-FREQ:UNKNOWN
     Route: 065
  6. LEVOXYL [Concomitant]
     Route: 065

REACTIONS (10)
  - CONVULSION [None]
  - DISABILITY [None]
  - DRUG INEFFECTIVE [None]
  - DRUG LEVEL INCREASED [None]
  - GINGIVAL HYPERPLASIA [None]
  - GINGIVAL PAIN [None]
  - GINGIVAL SWELLING [None]
  - INTESTINAL OBSTRUCTION [None]
  - PETIT MAL EPILEPSY [None]
  - ROAD TRAFFIC ACCIDENT [None]
